FAERS Safety Report 16014064 (Version 2)
Quarter: 2019Q3

REPORT INFORMATION
  Report Type: Spontaneous
  Country: CA (occurrence: CA)
  Receive Date: 20190227
  Receipt Date: 20190802
  Transmission Date: 20191004
  Serious: Yes (Death, Other)
  Sender: FDA-Public Use
  Company Number: CA-PFIZER INC-2019081667

PATIENT
  Age: 17 Year
  Sex: Male
  Weight: 60 kg

DRUGS (5)
  1. CEFTRIAXONE SODIUM. [Suspect]
     Active Substance: CEFTRIAXONE SODIUM
     Indication: SEPSIS
     Dosage: 2 G, 2X/DAY
     Route: 042
     Dates: start: 2017
  2. CLONAZEPAM. [Concomitant]
     Active Substance: CLONAZEPAM
     Dosage: 0.5 MG, 2X/DAY
     Route: 048
  3. VALPROIC ACID. [Concomitant]
     Active Substance: VALPROIC ACID
     Dosage: 1250 MG, 2X/DAY
     Route: 048
  4. TOPIRAMATE. [Concomitant]
     Active Substance: TOPIRAMATE
     Dosage: 200 MG, 2X/DAY
  5. VIGABATRIN. [Concomitant]
     Active Substance: VIGABATRIN
     Dosage: 3 G, 2X/DAY

REACTIONS (4)
  - Haemoglobin decreased [Fatal]
  - Haemolysis [Fatal]
  - Blood potassium increased [Fatal]
  - Cardiac arrest [Fatal]
